FAERS Safety Report 10081297 (Version 3)
Quarter: 2014Q2

REPORT INFORMATION
  Report Type: Spontaneous
  Country: US (occurrence: US)
  Receive Date: 20140416
  Receipt Date: 20140502
  Transmission Date: 20141212
  Serious: Yes (Hospitalization)
  Sender: FDA-Public Use
  Company Number: US-JNJFOC-20140406752

PATIENT
  Age: 10 Decade
  Sex: Female

DRUGS (2)
  1. XARELTO [Suspect]
     Indication: THROMBOSIS PROPHYLAXIS
     Route: 048
     Dates: start: 2013, end: 20130305
  2. XARELTO [Suspect]
     Indication: HIP ARTHROPLASTY
     Route: 048
     Dates: start: 2013, end: 20130305

REACTIONS (5)
  - Shock [Recovered/Resolved]
  - Haemoglobin decreased [Recovered/Resolved]
  - Skin haemorrhage [Recovered/Resolved]
  - Contusion [Recovered/Resolved]
  - Haematocrit decreased [Recovered/Resolved]
